FAERS Safety Report 6310842-3 (Version None)
Quarter: 2009Q3

REPORT INFORMATION
  Report Type: 
  Country: None (occurrence: None)
  Receive Date: 20090812
  Receipt Date: 20090812
  Transmission Date: 20100115
  Serious: Yes (Hospitalization)
  Sender: FDA-Public Use
  Company Number: 440014M09USA

PATIENT
  Age: 59 Year
  Sex: Male
  Weight: 78 kg

DRUGS (1)
  1. SEROTISM [Suspect]
     Indication: HIV WASTING SYNDROME
     Dosage: 6 MG, 1 IN 1 DAYS
     Dates: start: 20090601, end: 20090601

REACTIONS (5)
  - ABSCESS LIMB [None]
  - DIABETIC KETOACIDOSIS [None]
  - DISEASE RECURRENCE [None]
  - LIPODYSTROPHY ACQUIRED [None]
  - STAPHYLOCOCCAL INFECTION [None]
